FAERS Safety Report 5501610-0 (Version None)
Quarter: 2007Q4

REPORT INFORMATION
  Report Type: 
  Country: None (occurrence: None)
  Receive Date: 20071030
  Receipt Date: 20071017
  Transmission Date: 20080405
  Serious: Yes (Hospitalization, Other)
  Sender: FDA-Public Use
  Company Number: US-ELI_LILLY_AND_COMPANY-US200707007101

PATIENT
  Sex: Female
  Weight: 99.319 kg

DRUGS (4)
  1. FORTEO [Suspect]
     Indication: OSTEOPOROSIS
     Dosage: 20 UG, DAILY (1/D)
     Dates: start: 20070514
  2. EFFEXOR XR [Concomitant]
     Dosage: 75 MG, UNK
  3. NORFLEX                            /00018303/ [Concomitant]
     Dosage: 100 MG, 2/D
  4. COMBIVENT [Concomitant]
     Dosage: 2 D/F, 4/D

REACTIONS (1)
  - OSTEONECROSIS [None]
